FAERS Safety Report 5254559-5 (Version None)
Quarter: 2007Q1

REPORT INFORMATION
  Report Type: 
  Country: None (occurrence: None)
  Receive Date: 20070302
  Receipt Date: 20070205
  Transmission Date: 20070707
  Serious: Yes (Other)
  Sender: FDA-Public Use
  Company Number: JP-PFIZER INC-2007013364

PATIENT
  Age: 68 Year
  Sex: Male

DRUGS (4)
  1. DETRUSITOL [Suspect]
  2. SPIROPENT [Suspect]
  3. PONTAL [Concomitant]
     Route: 048
  4. SEDES [Concomitant]
     Route: 048

REACTIONS (1)
  - PRURIGO [None]
